FAERS Safety Report 15936360 (Version 3)
Quarter: 2019Q1

REPORT INFORMATION
  Report Type: Report from Study
  Country: None (occurrence: ES)
  Receive Date: 20190208
  Receipt Date: 20190218
  Transmission Date: 20190417
  Serious: Yes (Death, Hospitalization)
  Sender: FDA-Public Use
  Company Number: ES-ABBVIE-19S-144-2652704-00

PATIENT
  Age: 76 Year
  Sex: Female
  Weight: 41 kg

DRUGS (1)
  1. DUODOPA [Suspect]
     Active Substance: CARBIDOPA\LEVODOPA
     Indication: PARKINSON^S DISEASE
     Route: 050
     Dates: start: 20190129

REACTIONS (5)
  - Colitis ischaemic [Fatal]
  - Gastrointestinal oedema [Not Recovered/Not Resolved]
  - Abdominal pain [Not Recovered/Not Resolved]
  - Vessel perforation [Fatal]
  - Faecaloma [Fatal]

NARRATIVE: CASE EVENT DATE: 201902
